FAERS Safety Report 15301109 (Version 10)
Quarter: 2019Q4

REPORT INFORMATION
  Report Type: Spontaneous
  Country: US (occurrence: US)
  Receive Date: 20180821
  Receipt Date: 20191017
  Transmission Date: 20200122
  Serious: Yes (Hospitalization, Disabling, Other)
  Sender: FDA-Public Use
  Company Number: US-PFIZER INC-2018334061

PATIENT
  Age: 58 Year
  Sex: Female
  Weight: 64 kg

DRUGS (4)
  1. FLECTOR [Suspect]
     Active Substance: DICLOFENAC EPOLAMINE
     Indication: PAIN IN EXTREMITY
     Dosage: 1X/DAY, ON RIGHT LEG BELOW THE KNEE FOR 6-8 HOURS
     Route: 062
     Dates: start: 2018, end: 201806
  2. FLECTOR [Suspect]
     Active Substance: DICLOFENAC EPOLAMINE
     Dosage: UNK
     Dates: start: 201805
  3. FLECTOR [Suspect]
     Active Substance: DICLOFENAC EPOLAMINE
     Dosage: UNK
     Dates: start: 201805, end: 201806
  4. LIDOCAINE. [Suspect]
     Active Substance: LIDOCAINE
     Indication: PAIN
     Dosage: UNK
     Route: 062
     Dates: start: 201805

REACTIONS (7)
  - Loss of consciousness [Recovered/Resolved]
  - Expired product administered [Unknown]
  - Inappropriate schedule of product administration [Unknown]
  - Peripheral vascular disorder [Unknown]
  - Muscle disorder [Unknown]
  - Peripheral artery occlusion [Recovered/Resolved with Sequelae]
  - Pain in extremity [Unknown]

NARRATIVE: CASE EVENT DATE: 201805
